FAERS Safety Report 21478166 (Version 2)
Quarter: 2022Q4

REPORT INFORMATION
  Report Type: Report from Study
  Country: US (occurrence: US)
  Receive Date: 20221019
  Receipt Date: 20221125
  Transmission Date: 20230112
  Serious: No
  Sender: FDA-Public Use
  Company Number: US-ABBVIE-4155901

PATIENT
  Sex: Female

DRUGS (30)
  1. VENCLEXTA [Suspect]
     Active Substance: VENETOCLAX
     Indication: Chronic lymphocytic leukaemia (in remission)
     Route: 048
     Dates: start: 20220517
  2. VENCLEXTA [Suspect]
     Active Substance: VENETOCLAX
     Indication: Chronic lymphocytic leukaemia (in remission)
     Dosage: TIME INTERVAL: 0.33333333 DAYS
     Route: 048
  3. CYCLOBENZAPRINE [Concomitant]
     Active Substance: CYCLOBENZAPRINE
     Indication: Product used for unknown indication
  4. ESTRADIOL [Concomitant]
     Active Substance: ESTRADIOL
     Indication: Product used for unknown indication
  5. Vitamin E CAPSULE [Concomitant]
     Indication: Product used for unknown indication
     Route: 065
  6. VITAMIN A-BETA Carotene 1 TABLET [Concomitant]
     Indication: Product used for unknown indication
  7. BEVESPI Aerosphere Inhalation [Concomitant]
     Indication: Product used for unknown indication
  8. VITAMIN C 250 MG [Concomitant]
     Indication: Product used for unknown indication
  9. FLAXSEED [Concomitant]
     Active Substance: FLAX SEED
     Indication: Product used for unknown indication
  10. ZINC GLUCONATE 100 MG [Concomitant]
     Indication: Product used for unknown indication
     Route: 065
  11. SUMATRIPTAN  1-2 TABLET [Concomitant]
     Indication: Product used for unknown indication
  12. Cyanocobalamin 5000 MCG [Concomitant]
     Indication: Product used for unknown indication
  13. BUSPIRONE  HCl Oral Tablet 7.5 MG [Concomitant]
     Indication: Product used for unknown indication
  14. MIRALAX Oral Powder 17 GM/SCOOP [Concomitant]
     Indication: Product used for unknown indication
  15. CHOLECALCIFEROL 5000 UNITS [Concomitant]
     Indication: Product used for unknown indication
  16. BIOTIN 10000 MCG [Concomitant]
     Indication: Product used for unknown indication
  17. APPLE CIDER VINEGAR 2 TABLET [Concomitant]
     Indication: Product used for unknown indication
  18. ALBUTEROL SULFATE [Concomitant]
     Active Substance: ALBUTEROL SULFATE
     Indication: Product used for unknown indication
  19. VITAMIN D3 2000 UNITS [Concomitant]
     Indication: Product used for unknown indication
     Route: 065
  20. MELOXICAM Oral Tablet 15 MG [Concomitant]
     Indication: Product used for unknown indication
  21. ASPIRIN [Concomitant]
     Active Substance: ASPIRIN
     Indication: Product used for unknown indication
  22. PROBIOTICS NOS [Concomitant]
     Active Substance: PROBIOTICS NOS
     Indication: Product used for unknown indication
  23. AMOXICILLIN Oral Tablet 875 MG [Concomitant]
     Indication: Product used for unknown indication
  24. Collagen-Chondroitin-Hyaluronic [Concomitant]
     Indication: Product used for unknown indication
  25. Gazyva Intravenous Solution 1000 MG [Concomitant]
     Indication: Product used for unknown indication
  26. L-GLUTAMIC ACID [Concomitant]
     Indication: Product used for unknown indication
  27. COLLAGEN PLUS VITAMIN C [Concomitant]
     Indication: Product used for unknown indication
  28. FLAXSEE [Concomitant]
     Indication: Product used for unknown indication
  29. CYCLOBENZAPRINE HYDROCHLORIDE [Concomitant]
     Active Substance: CYCLOBENZAPRINE HYDROCHLORIDE
     Indication: Product used for unknown indication
  30. ESTRADIOL [Concomitant]
     Active Substance: ESTRADIOL
     Indication: Product used for unknown indication

REACTIONS (5)
  - Alopecia [Not Recovered/Not Resolved]
  - Dyspepsia [Not Recovered/Not Resolved]
  - Weight increased [Not Recovered/Not Resolved]
  - Pain [Not Recovered/Not Resolved]
  - Alopecia [Not Recovered/Not Resolved]
